FAERS Safety Report 7753149-X (Version None)
Quarter: 2011Q3

REPORT INFORMATION
  Report Type: 
  Country: None (occurrence: None)
  Receive Date: 20110915
  Receipt Date: 20110913
  Transmission Date: 20111222
  Serious: Yes (Other)
  Sender: FDA-Public Use
  Company Number: US-PFIZER INC-2011006700

PATIENT
  Sex: Female
  Weight: 83.9 kg

DRUGS (7)
  1. FOSAMAX [Suspect]
     Dosage: UNK
  2. VITAMIN D [Concomitant]
  3. CHANTIX [Suspect]
     Indication: SMOKING CESSATION THERAPY
     Dosage: 0.5 MG, 1X/DAY
     Route: 048
     Dates: start: 20110102, end: 20110101
  4. NAPROXEN (ALEVE) [Concomitant]
     Indication: PAIN
     Dosage: UNK
  5. CALCIUM [Concomitant]
     Dosage: UNK
  6. FISH OIL [Concomitant]
     Dosage: UNK
  7. CHANTIX [Suspect]
     Dosage: UNK
     Route: 048
     Dates: start: 20110109, end: 20110526

REACTIONS (14)
  - ABNORMAL DREAMS [None]
  - DYSPEPSIA [None]
  - TOOTH LOSS [None]
  - DYSGEUSIA [None]
  - DRUG INEFFECTIVE [None]
  - WEIGHT INCREASED [None]
  - DEPRESSED MOOD [None]
  - CATARACT [None]
  - DECREASED APPETITE [None]
  - MOOD SWINGS [None]
  - INCREASED APPETITE [None]
  - TOBACCO USER [None]
  - CONSTIPATION [None]
  - INSOMNIA [None]
